FAERS Safety Report 4916082-4 (Version None)
Quarter: 2006Q1

REPORT INFORMATION
  Report Type: 
  Country: None (occurrence: None)
  Receive Date: 20060214
  Receipt Date: 20060205
  Transmission Date: 20060701
  Serious: Yes (Hospitalization, Other)
  Sender: FDA-Public Use
  Company Number: 2004017815

PATIENT
  Sex: Female

DRUGS (7)
  1. LIPITOR [Suspect]
     Indication: BLOOD CHOLESTEROL INCREASED
  2. PLAVIX [Concomitant]
  3. COSOPT [Concomitant]
  4. TOPROL-XL [Concomitant]
  5. ASPIRIN [Concomitant]
  6. VITAMINS (VITAMINS) [Concomitant]
  7. NITROGLYCERIN TRANSDERMAL SYSTEM (GLYCERYL TRINITRATE) [Concomitant]

REACTIONS (11)
  - ANGINA PECTORIS [None]
  - ARRHYTHMIA [None]
  - ARTHRITIS [None]
  - CORONARY ARTERY OCCLUSION [None]
  - EXTRASYSTOLES [None]
  - FATIGUE [None]
  - GLAUCOMA [None]
  - HEART RATE DECREASED [None]
  - HYPERHIDROSIS [None]
  - IRRITABILITY [None]
  - MYALGIA [None]
